FAERS Safety Report 6988409-3 (Version None)
Quarter: 2010Q3

REPORT INFORMATION
  Report Type: 
  Country: None (occurrence: None)
  Receive Date: 20100916
  Receipt Date: 20100915
  Transmission Date: 20110219
  Serious: Yes (Life-Threatening, Hospitalization)
  Sender: FDA-Public Use
  Company Number: PHHO2010DE13489

PATIENT
  Sex: Female
  Weight: 62.5 kg

DRUGS (10)
  1. AFINITOR [Suspect]
     Indication: CARCINOID TUMOUR
     Dosage: DOUBLE BLIND
     Route: 048
     Dates: start: 20080324
  2. BLINDED NO TREATMENT RECEIVED NOMED [Suspect]
     Indication: CARCINOID TUMOUR
     Dosage: DOUBLE BLIND
     Route: 048
     Dates: start: 20080324
  3. BLINDED PLACEBO COMP-PLA+ [Suspect]
     Indication: CARCINOID TUMOUR
     Dosage: DOUBLE BLIND
     Route: 048
     Dates: start: 20080324
  4. SANDOSTATIN LAR [Suspect]
     Indication: CARCINOID TUMOUR
     Dosage: DOUBLE BLIND
     Route: 030
     Dates: start: 20080324
  5. VERAPAMIL [Concomitant]
     Indication: HYPERTENSION
  6. VERAPAMIL [Concomitant]
     Indication: ATRIAL FIBRILLATION
  7. OMEPRAZOLE [Concomitant]
     Indication: GASTRITIS
  8. OMEPRAZOLE [Concomitant]
     Indication: REFLUX OESOPHAGITIS
  9. DOXEPIN HCL [Concomitant]
     Indication: VERTIGO
  10. PANKREATIN [Concomitant]
     Indication: PANCREATIC INSUFFICIENCY

REACTIONS (3)
  - ANGINA PECTORIS [None]
  - CARDIAC VENTRICULAR DISORDER [None]
  - CONCOMITANT DISEASE PROGRESSION [None]
